FAERS Safety Report 17437896 (Version 1)
Quarter: 2020Q1

REPORT INFORMATION
  Report Type: Spontaneous
  Country: US (occurrence: US)
  Receive Date: 20200219
  Receipt Date: 20200219
  Transmission Date: 20200409
  Serious: Yes (Hospitalization, Other)
  Sender: FDA-Public Use
  Company Number: US-DRREDDYS-USA/USA/20/0119633

PATIENT
  Age: 76 Year
  Sex: Female
  Weight: 57 kg

DRUGS (3)
  1. GEMCITABINE. [Suspect]
     Active Substance: GEMCITABINE
     Indication: PANCREATIC CARCINOMA METASTATIC
  2. GEMCITABINE. [Suspect]
     Active Substance: GEMCITABINE
     Dates: start: 20200108
  3. ABRAXANE [Suspect]
     Active Substance: PACLITAXEL
     Indication: PANCREATIC CARCINOMA METASTATIC
     Dates: start: 20200108

REACTIONS (9)
  - Atrial fibrillation [Unknown]
  - Embolism [Unknown]
  - Urinary tract infection [Recovering/Resolving]
  - Atelectasis [Unknown]
  - Rash [Recovered/Resolved]
  - Pleural effusion [Unknown]
  - Fatigue [Recovering/Resolving]
  - Pneumonia [Unknown]
  - Dyspnoea [Recovering/Resolving]

NARRATIVE: CASE EVENT DATE: 20191202
